FAERS Safety Report 15077042 (Version 1)
Quarter: 2018Q3

REPORT INFORMATION
  Report Type: Spontaneous
  Country: ZA (occurrence: ZA)
  Receive Date: 20180627
  Receipt Date: 20180627
  Transmission Date: 20181010
  Serious: Yes (Hospitalization)
  Sender: FDA-Public Use
  Company Number: ZA-PFIZER INC-2018257272

PATIENT
  Age: 48 Year
  Sex: Male

DRUGS (10)
  1. BIGSENS [Suspect]
     Active Substance: METFORMIN HYDROCHLORIDE
     Dosage: 850 MG, UNK
  2. ECOTRIN [Suspect]
     Active Substance: ASPIRIN
     Dosage: 81 MG, UNK
  3. ASPAVOR [Suspect]
     Active Substance: ATORVASTATIN
     Dosage: 10 MG, UNK
  4. MYLAN FUROSEMIDE [Suspect]
     Active Substance: FUROSEMIDE
     Dosage: 40 MG, UNK
  5. DIAGLUCIDE [Suspect]
     Active Substance: GLICLAZIDE
     Dosage: 80 MG, UNK
  6. MYOPRIN [Suspect]
     Active Substance: ASPIRIN
     Dosage: 100 MG, UNK
  7. CARLOC [Suspect]
     Active Substance: CARVEDILOL
     Dosage: 12.5 MG, UNK
  8. HYDRALAZINE SANDOZ [Suspect]
     Active Substance: HYDRALAZINE HYDROCHLORIDE
     Dosage: 25 MG, UNK
  9. CIPLA PIOGLITAZONE [Suspect]
     Active Substance: PIOGLITAZONE
     Dosage: 30 MG, UNK
  10. TREPILINE /00002201/ [Suspect]
     Active Substance: AMITRIPTYLINE
     Dosage: 25 MG, UNK

REACTIONS (1)
  - Cardiac disorder [Unknown]
